FAERS Safety Report 8544875-3 (Version None)
Quarter: 2012Q3

REPORT INFORMATION
  Report Type: 
  Country: None (occurrence: None)
  Receive Date: 20120727
  Receipt Date: 20120718
  Transmission Date: 20120928
  Serious: Yes (Hospitalization, Other)
  Sender: FDA-Public Use
  Company Number: US-ELI_LILLY_AND_COMPANY-US201108008151

PATIENT
  Sex: Female

DRUGS (24)
  1. FORTEO [Suspect]
     Dosage: 20 UG, QD
  2. OMEPRAZOLE [Concomitant]
     Dosage: 20 MG, BID
  3. FLAXSEED OIL [Concomitant]
     Dosage: 1300 MG, QD
  4. FORTEO [Suspect]
     Indication: OSTEOPOROSIS POSTMENOPAUSAL
     Dosage: 20 UG, QD
     Route: 065
  5. TRACLEER [Concomitant]
     Dosage: 125 MG, QD
  6. FORTEO [Suspect]
     Dosage: 20 UG, QD
  7. MULTI-VITAMIN [Concomitant]
     Dosage: UNK, QD
  8. LOVAZA [Concomitant]
     Dosage: UNK, QD
  9. SINGULAIR [Concomitant]
     Dosage: 10 MG, QD
  10. OXYGEN [Concomitant]
     Indication: PULMONARY ARTERIAL HYPERTENSION
  11. POTASSIUM CHLORIDE [Concomitant]
     Dosage: 10 MEQ, QD
  12. FERROUS SULFATE TAB [Concomitant]
     Indication: ANAEMIA
     Dosage: 365 MG, BID
  13. GLUCOSAMINE CHONDROITIN [Concomitant]
     Dosage: 1500 MG, BID
  14. SYMBICORT [Concomitant]
     Dosage: 2 DF, BID
  15. LEVOTHYROXINE SODIUM [Concomitant]
     Indication: THYROID DISORDER
     Dosage: 25 UG, QD
  16. CALCIUM + VITAMIN D [Concomitant]
     Dosage: 500 MG, TID
  17. FUROSEMIDE [Concomitant]
     Indication: JOINT SWELLING
     Dosage: 40 MG, QD
  18. ROPINIROLE [Concomitant]
     Indication: RESTLESS LEGS SYNDROME
     Dosage: 1 MG, BID
  19. GABAPENTIN [Concomitant]
     Dosage: 400 MG, BID
  20. VITAMIN D [Concomitant]
     Dosage: 2000 IU, QD
  21. REVATIO [Concomitant]
     Dosage: 40 MG, TID
  22. ENALAPRIL MALEATE [Concomitant]
     Indication: BLOOD PRESSURE
     Dosage: 5 MG, QD
  23. FORTEO [Suspect]
     Dosage: 20 UG, QD
  24. TRENTAL [Concomitant]
     Dosage: 400 MG, TID

REACTIONS (11)
  - PULMONARY HYPERTENSION [None]
  - OVERDOSE [None]
  - DYSPNOEA [None]
  - INJECTION SITE DISCOMFORT [None]
  - ROAD TRAFFIC ACCIDENT [None]
  - HEADACHE [None]
  - NECK INJURY [None]
  - TERMINAL STATE [None]
  - MEMORY IMPAIRMENT [None]
  - SUBDURAL HAEMATOMA [None]
  - TOTAL LUNG CAPACITY DECREASED [None]
